FAERS Safety Report 5827898-4 (Version None)
Quarter: 2008Q3

REPORT INFORMATION
  Report Type: 
  Country: None (occurrence: None)
  Receive Date: 20080730
  Receipt Date: 20080718
  Transmission Date: 20090109
  Serious: Yes (Hospitalization)
  Sender: FDA-Public Use
  Company Number: CH-PFIZER INC-2008055339

PATIENT
  Sex: Male
  Weight: 176 kg

DRUGS (4)
  1. GENOTROPIN [Suspect]
     Indication: HYPOPITUITARISM
     Dosage: DAILY DOSE:.2MG-FREQ:DAILY
     Route: 058
     Dates: start: 20061025, end: 20070124
  2. TESTOSTERONE [Concomitant]
     Dosage: TEXT:1 AMPULE EVERY 3 MONTHS
  3. TESTOVIRON [Concomitant]
  4. ELTROXIN [Concomitant]
     Route: 048

REACTIONS (1)
  - PITUITARY HAEMORRHAGE [None]
